FAERS Safety Report 13935855 (Version 1)
Quarter: 2017Q3

REPORT INFORMATION
  Report Type: Spontaneous
  Country: US (occurrence: US)
  Receive Date: 20170903
  Receipt Date: 20170903
  Transmission Date: 20171127
  Serious: Yes (Other)
  Sender: FDA-Public Use
  Company Number: None

PATIENT
  Age: 67 Year
  Sex: Female
  Weight: 101.25 kg

DRUGS (23)
  1. PRAZOSIN. [Concomitant]
     Active Substance: PRAZOSIN
  2. ZANTAC [Concomitant]
     Active Substance: RANITIDINE HYDROCHLORIDE
  3. VSL #3 [Concomitant]
  4. VITAMIN C [Concomitant]
     Active Substance: ASCORBIC ACID
  5. VITAMIN B12 [Concomitant]
     Active Substance: CYANOCOBALAMIN
  6. TOPAMAX [Concomitant]
     Active Substance: TOPIRAMATE
  7. SKELAXIN [Suspect]
     Active Substance: METAXALONE
     Indication: MYALGIA
     Dosage: ?          QUANTITY:1 TABLET(S);?
     Route: 048
  8. DELPLIN [Concomitant]
  9. REMOREN [Concomitant]
  10. SEROQUEL [Concomitant]
     Active Substance: QUETIAPINE FUMARATE
  11. EFFEXOR XR [Concomitant]
     Active Substance: VENLAFAXINE HYDROCHLORIDE
  12. AMBIEN CR [Concomitant]
     Active Substance: ZOLPIDEM TARTRATE
  13. COQ12 [Concomitant]
  14. BAYER 81 [Concomitant]
  15. BACLOFEN. [Concomitant]
     Active Substance: BACLOFEN
  16. VALIUM [Concomitant]
     Active Substance: DIAZEPAM
  17. COLACE [Concomitant]
     Active Substance: DOCUSATE SODIUM
  18. TAMOXFEN [Concomitant]
  19. BENTYL [Concomitant]
     Active Substance: DICYCLOMINE HYDROCHLORIDE
  20. LINZESS [Concomitant]
     Active Substance: LINACLOTIDE
  21. VITAMIN E [Concomitant]
     Active Substance: .ALPHA.-TOCOPHEROL
  22. VITAMIN D [Concomitant]
     Active Substance: CHOLECALCIFEROL
  23. CALCIUM [Concomitant]
     Active Substance: CALCIUM

REACTIONS (14)
  - Malaise [None]
  - Abdominal distension [None]
  - Chills [None]
  - Head injury [None]
  - Syncope [None]
  - Abdominal pain upper [None]
  - Constipation [None]
  - Dizziness [None]
  - Migraine [None]
  - Rash [None]
  - Fatigue [None]
  - Cold sweat [None]
  - Loss of consciousness [None]
  - Pyrexia [None]

NARRATIVE: CASE EVENT DATE: 20170806
